FAERS Safety Report 18468897 (Version 2)
Quarter: 2020Q4

REPORT INFORMATION
  Report Type: Spontaneous
  Country: US (occurrence: US)
  Receive Date: 20201105
  Receipt Date: 20201221
  Transmission Date: 20210114
  Serious: Yes (Congenital Anomaly, Other)
  Sender: FDA-Public Use
  Company Number: US-INDIVIOR LIMITED-INDV-127043-2020

PATIENT
  Sex: Female

DRUGS (1)
  1. SUBLOCADE [Suspect]
     Active Substance: BUPRENORPHINE
     Indication: DRUG DEPENDENCE
     Dosage: 300 MILLIGRAM, QMO (MOTHER DOSE)
     Route: 064
     Dates: start: 202003, end: 2020

REACTIONS (2)
  - Foetal exposure during pregnancy [Recovered/Resolved]
  - Congenital anomaly [Unknown]

NARRATIVE: CASE EVENT DATE: 2020
